FAERS Safety Report 6673410-X (Version None)
Quarter: 2010Q2

REPORT INFORMATION
  Report Type: 
  Country: None (occurrence: None)
  Receive Date: 20100408
  Receipt Date: 20100329
  Transmission Date: 20101027
  Serious: Yes (Other)
  Sender: FDA-Public Use
  Company Number: GB-PFIZER INC-2010039450

PATIENT
  Age: 29 Year
  Sex: Female
  Weight: 68 kg

DRUGS (1)
  1. DEPO-PROVERA [Suspect]
     Dosage: UNK
     Dates: start: 20091229, end: 20091229

REACTIONS (4)
  - HYPERSENSITIVITY [None]
  - INJECTION SITE SWELLING [None]
  - RASH [None]
  - RASH MACULO-PAPULAR [None]
